FAERS Safety Report 13079037 (Version 4)
Quarter: 2017Q1

REPORT INFORMATION
  Report Type: Report from Study
  Country: US (occurrence: US)
  Receive Date: 20170102
  Receipt Date: 20170117
  Transmission Date: 20170428
  Serious: No
  Sender: FDA-Public Use
  Company Number: US-009507513-1612USA014220

PATIENT
  Age: 69 Year
  Sex: Female

DRUGS (11)
  1. DIOVAN [Concomitant]
     Active Substance: VALSARTAN
  2. VITAMINS (UNSPECIFIED) [Concomitant]
     Active Substance: VITAMINS
  3. ATIVAN [Concomitant]
     Active Substance: LORAZEPAM
  4. NORVASC [Concomitant]
     Active Substance: AMLODIPINE BESYLATE
  5. CANNABIDIOL [Concomitant]
     Active Substance: CANNABIDIOL
  6. PEMBROLIZUMAB. [Suspect]
     Active Substance: PEMBROLIZUMAB
     Indication: LUNG NEOPLASM MALIGNANT
     Dosage: UNK, Q3W
     Dates: start: 20161223
  7. VALTREX [Concomitant]
     Active Substance: VALACYCLOVIR HYDROCHLORIDE
  8. CYANOCOBALAMIN. [Concomitant]
     Active Substance: CYANOCOBALAMIN
  9. ZOLOFT [Concomitant]
     Active Substance: SERTRALINE HYDROCHLORIDE
  10. ZOFRAN [Concomitant]
     Active Substance: ONDANSETRON HYDROCHLORIDE
  11. SYNTHROID [Concomitant]
     Active Substance: LEVOTHYROXINE SODIUM

REACTIONS (5)
  - Rectal discharge [Recovered/Resolved]
  - Abdominal pain upper [Recovered/Resolved]
  - Product use issue [Unknown]
  - Decreased appetite [Recovered/Resolved]
  - Gastrointestinal motility disorder [Recovered/Resolved]

NARRATIVE: CASE EVENT DATE: 20161224
